FAERS Safety Report 23351381 (Version 1)
Quarter: 2023Q4

REPORT INFORMATION
  Report Type: Spontaneous
  Country: CA (occurrence: None)
  Receive Date: 20231229
  Receipt Date: 20231229
  Transmission Date: 20240110
  Serious: Yes (Other)
  Sender: FDA-Public Use
  Company Number: 2023A292882

PATIENT
  Age: 49 Year
  Sex: Female

DRUGS (3)
  1. FULVESTRANT [Suspect]
     Active Substance: FULVESTRANT
     Indication: Breast cancer female
     Dosage: 250.0MG UNKNOWN
  2. XELODA [Suspect]
     Active Substance: CAPECITABINE
     Indication: Breast cancer female
  3. POVIDONE-IODINE [Concomitant]
     Active Substance: POVIDONE-IODINE
     Indication: Infection prophylaxis

REACTIONS (6)
  - Breast cancer stage IV [Not Recovered/Not Resolved]
  - Malignant neoplasm progression [Not Recovered/Not Resolved]
  - Metastases to bone [Not Recovered/Not Resolved]
  - Metastases to liver [Not Recovered/Not Resolved]
  - Metastases to lymph nodes [Not Recovered/Not Resolved]
  - Drug ineffective [Not Recovered/Not Resolved]
